FAERS Safety Report 22895003 (Version 3)
Quarter: 2024Q1

REPORT INFORMATION
  Report Type: Spontaneous
  Country: CA (occurrence: CA)
  Receive Date: 20230901
  Receipt Date: 20240313
  Transmission Date: 20240410
  Serious: Yes (Hospitalization, Other)
  Sender: FDA-Public Use
  Company Number: CA-002147023-PHHY2018CA068293

PATIENT
  Age: 72 Year
  Sex: Female

DRUGS (9)
  1. CODEINE PHOSPHATE [Suspect]
     Active Substance: CODEINE PHOSPHATE
     Indication: Product used for unknown indication
     Dosage: UNK
     Route: 065
  2. MOXIFLOXACIN [Suspect]
     Active Substance: MOXIFLOXACIN
     Indication: Arthritis infective
     Dosage: 400 MG, QD (10 DAYS)
     Route: 065
  3. MOXIFLOXACIN [Suspect]
     Active Substance: MOXIFLOXACIN
     Indication: Post procedural infection
     Dosage: UNK
     Route: 065
  4. SANDOSTATIN LAR DEPOT [Suspect]
     Active Substance: OCTREOTIDE ACETATE
     Indication: Carcinoid tumour
     Dosage: 30 MG, QMO (EVERY 4 WEEKS)
     Route: 030
     Dates: start: 20180412
  5. AMOXICILLIN [Concomitant]
     Active Substance: AMOXICILLIN
     Indication: Cystitis
     Dosage: 500 UNK
     Route: 065
  6. AMOXICILLIN [Concomitant]
     Active Substance: AMOXICILLIN
     Indication: Parotitis
  7. AMOXICILLIN\CLAVULANIC ACID [Concomitant]
     Active Substance: AMOXICILLIN\CLAVULANIC ACID
     Indication: Arthritis infective
     Dosage: UNK, QD
     Route: 065
  8. AMOXICILLIN\CLAVULANIC ACID [Concomitant]
     Active Substance: AMOXICILLIN\CLAVULANIC ACID
     Indication: Infection
     Dosage: UNK, BID
     Route: 065
  9. AMOXICILLIN\CLAVULANIC ACID [Concomitant]
     Active Substance: AMOXICILLIN\CLAVULANIC ACID
     Indication: Post procedural infection
     Dosage: UNK
     Route: 065

REACTIONS (32)
  - Chest pain [Unknown]
  - Cystitis [Unknown]
  - Thrombosis [Unknown]
  - Glaucoma [Unknown]
  - Tumour rupture [Unknown]
  - Cataract [Unknown]
  - Neoplasm malignant [Recovered/Resolved]
  - Abdominal pain [Unknown]
  - Cholelithiasis [Unknown]
  - Drug ineffective [Recovered/Resolved]
  - Carcinoid tumour [Unknown]
  - Malignant neoplasm progression [Unknown]
  - Metastases to neck [Unknown]
  - Metastases to thyroid [Unknown]
  - Malaise [Unknown]
  - Blood glucose abnormal [Unknown]
  - Incision site haematoma [Unknown]
  - Infrequent bowel movements [Unknown]
  - Abnormal faeces [Unknown]
  - Hypotension [Unknown]
  - Flushing [Unknown]
  - Anxiety [Unknown]
  - Scar [Recovered/Resolved]
  - Tooth abscess [Unknown]
  - Parotitis [Unknown]
  - Lung neoplasm [Unknown]
  - Depressed mood [Unknown]
  - Urine abnormality [Unknown]
  - Infection [Unknown]
  - Diarrhoea [Unknown]
  - Nausea [Unknown]
  - Wrong technique in product usage process [Unknown]

NARRATIVE: CASE EVENT DATE: 20180101
